FAERS Safety Report 9403318 (Version 1)
Quarter: 2013Q3

REPORT INFORMATION
  Report Type: Spontaneous
  Country: AR (occurrence: AR)
  Receive Date: 20130716
  Receipt Date: 20130716
  Transmission Date: 20140515
  Serious: Yes (Other)
  Sender: FDA-Public Use
  Company Number: PHHY2013AR073759

PATIENT
  Sex: Female

DRUGS (3)
  1. VISCOTEARS [Suspect]
     Indication: EYE OPERATION
     Dosage: UNK UKN, UNK
     Dates: start: 2010
  2. OFAL 0.5% [Suspect]
     Indication: GLAUCOMA
     Dosage: UNK UKN, UNK
     Dates: start: 20110625
  3. REFRESH                            /00880201/ [Concomitant]
     Dosage: UNK UKN, UNK

REACTIONS (4)
  - Visual acuity reduced [Not Recovered/Not Resolved]
  - Eye allergy [Not Recovered/Not Resolved]
  - Transplant rejection [Unknown]
  - Ocular hyperaemia [Unknown]
